FAERS Safety Report 22094444 (Version 3)
Quarter: 2023Q2

REPORT INFORMATION
  Report Type: Spontaneous
  Country: US (occurrence: US)
  Receive Date: 20230314
  Receipt Date: 20230407
  Transmission Date: 20230721
  Serious: Yes (Other)
  Sender: FDA-Public Use
  Company Number: US-HETERO-HET2023US00491

PATIENT
  Sex: Male

DRUGS (1)
  1. LEVOFLOXACIN [Suspect]
     Active Substance: LEVOFLOXACIN
     Indication: Product used for unknown indication
     Dosage: 500 MG, Q.D.
     Route: 065

REACTIONS (4)
  - Pneumonia [Unknown]
  - Bronchiolitis [Unknown]
  - Musculoskeletal stiffness [Unknown]
  - Pain [Unknown]
